FAERS Safety Report 12610782 (Version 2)
Quarter: 2016Q3

REPORT INFORMATION
  Report Type: Spontaneous
  Country: US (occurrence: US)
  Receive Date: 20160801
  Receipt Date: 20160909
  Transmission Date: 20161109
  Serious: Yes (Other)
  Sender: FDA-Public Use
  Company Number: US-PFIZER INC-2016318469

PATIENT
  Age: 80 Year
  Sex: Male
  Weight: 92 kg

DRUGS (3)
  1. IBRANCE [Suspect]
     Active Substance: PALBOCICLIB
     Dosage: 125 MG, CYCLIC (D 1 - 21 Q28 D)
     Route: 048
     Dates: start: 201605
  2. IBRANCE [Suspect]
     Active Substance: PALBOCICLIB
     Indication: BREAST CANCER METASTATIC
     Dosage: 125 MG, CYCLIC (DAYS 1 - 21 Q28 DAYS)
     Route: 048
     Dates: start: 201605
  3. IBRANCE [Suspect]
     Active Substance: PALBOCICLIB
     Dosage: 125 MG, CYCLIC (DAILY X 21 DAYS FOLLOWED BY 7 DAY REST PERIOD)
     Route: 048
     Dates: start: 20160606

REACTIONS (6)
  - White blood cell count decreased [Unknown]
  - Neutropenia [Not Recovered/Not Resolved]
  - Platelet count decreased [Unknown]
  - Thrombocytopenia [Not Recovered/Not Resolved]
  - Product use issue [Unknown]
  - Fatigue [Unknown]

NARRATIVE: CASE EVENT DATE: 201605
